FAERS Safety Report 9510443 (Version 1)
Quarter: 2013Q3

REPORT INFORMATION
  Report Type: Spontaneous
  Country: US (occurrence: US)
  Receive Date: 20130909
  Receipt Date: 20130909
  Transmission Date: 20140515
  Serious: No
  Sender: FDA-Public Use
  Company Number: US-TEVA-430797USA

PATIENT
  Age: 19 Year
  Sex: Female
  Weight: 66.28 kg

DRUGS (2)
  1. PARAGARD 380A [Suspect]
     Indication: CONTRACEPTION
     Route: 015
     Dates: start: 20130826
  2. NATURAL SUPPLEMENT FOR THYROID [Concomitant]
     Indication: THYROID DISORDER

REACTIONS (3)
  - Dysmenorrhoea [Not Recovered/Not Resolved]
  - Metrorrhagia [Not Recovered/Not Resolved]
  - Back pain [Not Recovered/Not Resolved]
